FAERS Safety Report 8441802-4 (Version None)
Quarter: 2012Q2

REPORT INFORMATION
  Report Type: 
  Country: None (occurrence: None)
  Receive Date: 20120615
  Receipt Date: 20120606
  Transmission Date: 20120825
  Serious: Yes (Hospitalization, Disabling, Other)
  Sender: FDA-Public Use
  Company Number: US-BAYER-201021683NA

PATIENT
  Age: 38 Year
  Sex: Female
  Weight: 56.689 kg

DRUGS (10)
  1. MINOCYCLINE [Concomitant]
  2. FIORICET [Concomitant]
     Dosage: UNK
     Route: 048
     Dates: start: 20080409
  3. YASMIN [Suspect]
     Indication: PREMENSTRUAL SYNDROME
     Dosage: UNK UNK, QD
     Route: 048
     Dates: start: 20070701, end: 20080611
  4. BUTALBITAL ACETAMINOPHEN AND CAFFEINE [Concomitant]
     Indication: HEADACHE
     Dosage: 1 TABLET EVERY 6-8 HOURS AS NEEDED
     Route: 048
     Dates: start: 20080403
  5. CLARITIN [Concomitant]
     Dosage: UNK
     Route: 048
     Dates: start: 20080409
  6. BENADRYL [Concomitant]
     Dosage: UNK
     Route: 048
     Dates: start: 20080409
  7. NICODERM [Concomitant]
     Indication: EX-TOBACCO USER
     Dosage: DAILY DOSE 21 MG
     Route: 062
     Dates: start: 20080611
  8. CHANTIX [Concomitant]
     Dosage: 1 MG, BID
     Route: 048
     Dates: start: 20080409
  9. HYDROCODONE BITARTRATE AND ACETAMINOPHEN [Concomitant]
  10. DOVONEX [Concomitant]
     Dosage: 60 G, BID
     Route: 061
     Dates: start: 20080417

REACTIONS (13)
  - DEPRESSION [None]
  - ANXIETY [None]
  - GAIT DISTURBANCE [None]
  - HALLUCINATION, OLFACTORY [None]
  - HALLUCINATION, VISUAL [None]
  - HEADACHE [None]
  - SPEECH DISORDER [None]
  - CEREBRAL INFARCTION [None]
  - COGNITIVE DISORDER [None]
  - HEMIPARESIS [None]
  - BRAIN OEDEMA [None]
  - ABNORMAL BEHAVIOUR [None]
  - RESPIRATORY FAILURE [None]
